FAERS Safety Report 6931555-0 (Version None)
Quarter: 2010Q3

REPORT INFORMATION
  Report Type: 
  Country: None (occurrence: None)
  Receive Date: 20100816
  Receipt Date: 20100731
  Transmission Date: 20110219
  Serious: Yes (Other)
  Sender: FDA-Public Use
  Company Number: ACO_00953_2010

PATIENT
  Sex: Male
  Weight: 92.9874 kg

DRUGS (5)
  1. AMPYRA [Suspect]
     Indication: GAIT DISTURBANCE
     Dosage: (10 MG BID ORAL)
     Route: 048
     Dates: start: 20100505, end: 20100519
  2. AMPYRA [Suspect]
     Indication: MUSCLE SPASTICITY
     Dosage: (10 MG BID ORAL)
     Route: 048
     Dates: start: 20100505, end: 20100519
  3. AMPYRA [Suspect]
     Indication: GAIT DISTURBANCE
     Dosage: (10 MG BID ORAL)
     Route: 048
     Dates: start: 20100601, end: 20100601
  4. AMPYRA [Suspect]
     Indication: MUSCLE SPASTICITY
     Dosage: (10 MG BID ORAL)
     Route: 048
     Dates: start: 20100601, end: 20100601
  5. LISINOPRIL [Concomitant]

REACTIONS (5)
  - CONFUSIONAL STATE [None]
  - DISORIENTATION [None]
  - DIZZINESS [None]
  - INSOMNIA [None]
  - NAUSEA [None]
